FAERS Safety Report 13878672 (Version 1)
Quarter: 2017Q3

REPORT INFORMATION
  Report Type: Spontaneous
  Country: FR (occurrence: FR)
  Receive Date: 20170817
  Receipt Date: 20170817
  Transmission Date: 20171127
  Serious: Yes (Other)
  Sender: FDA-Public Use
  Company Number: FR-BAYER-2017-156542

PATIENT
  Age: 44 Year
  Sex: Female
  Weight: 84 kg

DRUGS (1)
  1. MIRENA [Suspect]
     Active Substance: LEVONORGESTREL
     Indication: CHEMICAL CONTRACEPTION
     Dosage: 20 MCG/24HR, CONT
     Route: 015
     Dates: start: 20150918

REACTIONS (7)
  - Emotional disorder [Unknown]
  - Mood swings [Unknown]
  - Weight increased [Unknown]
  - Breast pain [Unknown]
  - Depression [Unknown]
  - Morbid thoughts [Unknown]
  - Aggression [Unknown]
